FAERS Safety Report 16629701 (Version 1)
Quarter: 2019Q3

REPORT INFORMATION
  Report Type: Spontaneous
  Country: FR (occurrence: FR)
  Receive Date: 20190725
  Receipt Date: 20190725
  Transmission Date: 20191004
  Serious: Yes (Hospitalization)
  Sender: FDA-Public Use
  Company Number: FR-TEVA-2019-FR-1082141

PATIENT
  Age: 35 Year
  Sex: Female
  Weight: 55 kg

DRUGS (3)
  1. ALPRAZOLAM. [Suspect]
     Active Substance: ALPRAZOLAM
     Dosage: 60 TABLETS OF 0.25 MG
     Route: 048
     Dates: start: 20190321, end: 20190321
  2. VALSARTAN. [Suspect]
     Active Substance: VALSARTAN
     Dosage: 2 160 MG TABLETS
     Route: 048
     Dates: start: 20190321, end: 20190321
  3. PRAZEPAM [Suspect]
     Active Substance: PRAZEPAM
     Dosage: 20 10 MG TABLETS
     Route: 048
     Dates: start: 20190321, end: 20190321

REACTIONS (2)
  - Altered state of consciousness [Recovered/Resolved]
  - Poisoning deliberate [Recovered/Resolved]

NARRATIVE: CASE EVENT DATE: 20190321
